FAERS Safety Report 19031621 (Version 2)
Quarter: 2021Q4

REPORT INFORMATION
  Report Type: Spontaneous
  Country: US (occurrence: US)
  Receive Date: 20210319
  Receipt Date: 20211123
  Transmission Date: 20220303
  Serious: Yes (Life-Threatening, Hospitalization, Other)
  Sender: FDA-Public Use
  Company Number: US-MLMSERVICE-20210309-2770253-1

PATIENT
  Age: 45 Year
  Sex: Male

DRUGS (2)
  1. ACETAMINOPHEN [Suspect]
     Active Substance: ACETAMINOPHEN
     Dosage: INGESTION OF AN UNDETERMINED AMOUNT
     Route: 048
  2. ACETAMINOPHEN [Suspect]
     Active Substance: ACETAMINOPHEN
     Dosage: INGESTION OF AN UNDETERMINED AMOUNT
     Route: 048

REACTIONS (5)
  - Intentional overdose [Recovered/Resolved]
  - Analgesic drug level increased [Recovered/Resolved]
  - Respiratory acidosis [Recovered/Resolved]
  - Metabolic acidosis [Recovered/Resolved]
  - Encephalopathy [Recovered/Resolved]
